FAERS Safety Report 9644854 (Version 4)
Quarter: 2013Q4

REPORT INFORMATION
  Report Type: Report from Study
  Country: IN (occurrence: IN)
  Receive Date: 20131025
  Receipt Date: 20131113
  Transmission Date: 20140711
  Serious: Yes (Hospitalization)
  Sender: FDA-Public Use
  Company Number: PHHY2013IN093549

PATIENT
  Age: 64 Year
  Sex: Female

DRUGS (3)
  1. ACLASTA [Suspect]
     Indication: OSTEOPOROSIS
     Dosage: 5MG/100ML/YEAR
     Route: 042
     Dates: start: 20120820
  2. ACLASTA [Suspect]
     Dosage: 5MG/100ML/YEAR
     Route: 042
     Dates: start: 20130815
  3. CALCIUM [Concomitant]
     Indication: BLOOD CALCIUM DECREASED
     Dosage: UNK

REACTIONS (6)
  - Fall [Unknown]
  - Radius fracture [Unknown]
  - Ulna fracture [Unknown]
  - Osteoporotic fracture [Unknown]
  - Spinal pain [Not Recovered/Not Resolved]
  - Pain in extremity [Recovered/Resolved]
